FAERS Safety Report 6507585-X (Version None)
Quarter: 2009Q4

REPORT INFORMATION
  Report Type: 
  Country: None (occurrence: None)
  Receive Date: 20091221
  Receipt Date: 20090213
  Transmission Date: 20100525
  Serious: No
  Sender: FDA-Public Use
  Company Number: US-BRISTOL-MYERS SQUIBB COMPANY-14506091

PATIENT
  Age: 53 Year
  Sex: Male
  Weight: 129 kg

DRUGS (2)
  1. PRAVACHOL [Suspect]
     Indication: BLOOD CHOLESTEROL INCREASED
     Dosage: INITIAL DOSE 40MG INCREASED TO 80MG
  2. GLUCOPHAGE [Concomitant]

REACTIONS (1)
  - NEUROPATHY PERIPHERAL [None]
